FAERS Safety Report 4807615-7 (Version None)
Quarter: 2005Q4

REPORT INFORMATION
  Report Type: 
  Country: None (occurrence: None)
  Receive Date: 20051020
  Receipt Date: 20051011
  Transmission Date: 20060501
  Serious: Yes (Congenital Anomaly)
  Sender: FDA-Public Use
  Company Number: 2005141323

PATIENT

DRUGS (2)
  1. DEPO-PROVERA [Suspect]
     Indication: CONTRACEPTION
     Dosage: 150 MG (150 MG, 1 ST INJECTION, EVERY 3 MONTHS) INTRAMUSCULAR
     Route: 030
     Dates: start: 20030101, end: 20030101
  2. DEPO-PROVERA [Suspect]
     Indication: CONTRACEPTION
     Dosage: 150 MG (150 MG, 1 ST INJECTION, EVERY 3 MONTHS) INTRAMUSCULAR
     Route: 030
     Dates: start: 20050923, end: 20050923

REACTIONS (3)
  - ARTERIOVENOUS MALFORMATION [None]
  - ATRIOVENTRICULAR SEPTAL DEFECT [None]
  - DRUG EXPOSURE DURING PREGNANCY [None]
